FAERS Safety Report 4425171-2 (Version None)
Quarter: 2004Q3

REPORT INFORMATION
  Report Type: 
  Country: None (occurrence: None)
  Receive Date: 20040811
  Receipt Date: 20040811
  Transmission Date: 20050211
  Serious: Yes (Other)
  Sender: FDA-Public Use
  Company Number: None

PATIENT
  Sex: Female

DRUGS (1)
  1. AMOXICILLIN [Suspect]
     Indication: RESPIRATORY DISORDER
     Dosage: ORAL
     Route: 048

REACTIONS (1)
  - TOOTH DECALCIFICATION [None]
